FAERS Safety Report 8798893 (Version 1)
Quarter: 2012Q4

REPORT INFORMATION
  Report Type: 
  Country: MX (occurrence: MX)
  Receive Date: 20120920
  Receipt Date: 20120920
  Transmission Date: 20130627
  Serious: Yes (Other)
  Sender: FDA-Public Use
  Company Number: PHHY2012MX081043

PATIENT
  Age: 84 Year
  Sex: Female

DRUGS (3)
  1. DIOVAN [Suspect]
     Indication: HYPERTENSION
     Dosage: 1 DF, (320 mg)
     Dates: start: 20090626
  2. DIOVAN [Suspect]
     Dosage: 1 DF, (250 mg)
     Dates: start: 20120911
  3. FUROSEMIDE [Concomitant]
     Indication: DIURETIC THERAPY

REACTIONS (3)
  - Arrhythmia [Recovered/Resolved]
  - Pyrexia [Recovered/Resolved]
  - Hypotension [Recovered/Resolved]
